FAERS Safety Report 8002205-X (Version None)
Quarter: 2011Q4

REPORT INFORMATION
  Report Type: 
  Country: None (occurrence: None)
  Receive Date: 20111220
  Receipt Date: 20111206
  Transmission Date: 20120403
  Serious: Yes (Hospitalization)
  Sender: FDA-Public Use
  Company Number: 2011S1001249

PATIENT
  Age: 50 Year
  Sex: Female
  Weight: 88 kg

DRUGS (4)
  1. LIVALO [Suspect]
     Dosage: 2 MG;BIW;PO
     Route: 048
     Dates: start: 20110801, end: 20110809
  2. PROZAC [Concomitant]
  3. NORCO [Concomitant]
  4. PRINZIDE [Concomitant]

REACTIONS (5)
  - RASH [None]
  - RENAL FAILURE ACUTE [None]
  - WEIGHT INCREASED [None]
  - FLUID RETENTION [None]
  - DYSPNOEA [None]
